FAERS Safety Report 5527002-6 (Version None)
Quarter: 2007Q4

REPORT INFORMATION
  Report Type: 
  Country: None (occurrence: None)
  Receive Date: 20071127
  Receipt Date: 20071113
  Transmission Date: 20080405
  Serious: Yes (Other)
  Sender: FDA-Public Use
  Company Number: GR-RANBAXY-2007RR-11461

PATIENT

DRUGS (1)
  1. PRAVASTATIN SODIUM 40 MG TABLETS [Suspect]
     Dosage: 40 MG, QD

REACTIONS (1)
  - PLEURAL EFFUSION [None]
